FAERS Safety Report 6905480-5 (Version None)
Quarter: 2010Q3

REPORT INFORMATION
  Report Type: 
  Country: None (occurrence: None)
  Receive Date: 20100804
  Receipt Date: 20100723
  Transmission Date: 20110219
  Serious: Yes (Other)
  Sender: FDA-Public Use
  Company Number: PHHY2010AT30475

PATIENT
  Age: 74 Year
  Sex: Female
  Weight: 63 kg

DRUGS (10)
  1. ALISKIREN ALI+ [Suspect]
     Dosage: 300 MG(0-0-1)
     Dates: start: 20090824
  2. RASILEZ HCT [Suspect]
     Dosage: 300/25 (1-0-0)
     Dates: start: 20091201
  3. TEVETEN [Concomitant]
     Dosage: 600 MG(1/0/0)
     Dates: start: 20090701, end: 20091201
  4. CARVEDILOL [Concomitant]
     Dosage: 25 MG(1/2-0-1/2)
     Dates: start: 20091201
  5. CARVEDILOL [Concomitant]
     Dosage: 25 MG(1-0-1/2)
     Dates: start: 20100119
  6. ITERIUM [Concomitant]
     Dosage: 1 MG(0/1/0)
     Dates: start: 20091201, end: 20100119
  7. ZANIDIP [Concomitant]
     Dosage: 10 MG(1/0/0)
     Dates: start: 20100120
  8. MACOUMAR [Concomitant]
     Dosage: 3 MG
     Dates: start: 20090701
  9. SIMVASTATIN [Concomitant]
     Indication: HYPERCHOLESTEROLAEMIA
     Dosage: 40 MG (0/0/1)
     Dates: start: 20090701, end: 20100121
  10. FLUVASTATIN [Concomitant]
     Dosage: 80 MG(0/0/1)
     Dates: start: 20100120

REACTIONS (3)
  - ATRIAL FIBRILLATION [None]
  - BLOOD PRESSURE INCREASED [None]
  - DRUG ADMINISTRATION ERROR [None]
